FAERS Safety Report 5334402-6 (Version None)
Quarter: 2007Q2

REPORT INFORMATION
  Report Type: 
  Country: None (occurrence: None)
  Receive Date: 20070523
  Receipt Date: 20070523
  Transmission Date: 20071010
  Serious: Yes (Hospitalization)
  Sender: FDA-Public Use
  Company Number: None

PATIENT
  Sex: Male
  Weight: 73.4827 kg

DRUGS (2)
  1. CETUXIMAB [Suspect]
     Indication: TRACHEAL CANCER
     Dosage: 150MG/M2 D 1, 8, 15, 22 Q28 IV
     Route: 042
     Dates: start: 20070228, end: 20070515
  2. TARCEVA [Suspect]
     Indication: TRACHEAL CANCER
     Dosage: 100MG DAILY PO
     Route: 048
     Dates: start: 20070228, end: 20070520

REACTIONS (1)
  - DYSPNOEA [None]
